FAERS Safety Report 5926736-9 (Version None)
Quarter: 2008Q4

REPORT INFORMATION
  Report Type: 
  Country: None (occurrence: None)
  Receive Date: 20081022
  Receipt Date: 20081015
  Transmission Date: 20090506
  Serious: Yes (Other)
  Sender: FDA-Public Use
  Company Number: US-JNJFOC-20081004108

PATIENT
  Age: 25 Year
  Sex: Male
  Weight: 65.77 kg

DRUGS (2)
  1. TYLENOL COUGH + SORE THROAT NIGHTTIME COOL BURST [Suspect]
     Route: 048
  2. TYLENOL COUGH + SORE THROAT NIGHTTIME COOL BURST [Suspect]
     Indication: DRUG USE FOR UNKNOWN INDICATION
     Route: 048

REACTIONS (4)
  - CHILLS [None]
  - DRUG ABUSE [None]
  - INSOMNIA [None]
  - TINNITUS [None]
